FAERS Safety Report 10034973 (Version 1)
Quarter: 2014Q1

REPORT INFORMATION
  Report Type: Spontaneous
  Country: ES (occurrence: ES)
  Receive Date: 20140325
  Receipt Date: 20140325
  Transmission Date: 20141002
  Serious: Yes (Other)
  Sender: FDA-Public Use
  Company Number: ES-SA-2014SA033284

PATIENT
  Age: 65 Year
  Sex: Female
  Weight: 61.3 kg

DRUGS (15)
  1. THYMOGLOBULIN [Suspect]
     Indication: LUNG TRANSPLANT REJECTION
     Route: 042
     Dates: start: 20140214
  2. THYMOGLOBULIN [Suspect]
     Indication: LUNG TRANSPLANT REJECTION
     Dosage: GIVEN TILL CUMULATIVE DOSE REACHED 3.75 MG/KG
     Route: 042
  3. THYMOGLOBULIN [Suspect]
     Indication: LUNG TRANSPLANT REJECTION
     Dosage: GIVEN TILL CUMULATIVE DOSE REACHED 3.75 MG/KG
     Route: 042
  4. THYMOGLOBULIN [Suspect]
     Indication: LUNG TRANSPLANT REJECTION
     Dosage: GIVEN TILL CUMULATIVE DOSE REACHED 3.75 MG/KG
     Route: 042
     Dates: end: 20140228
  5. TACROLIMUS [Suspect]
     Indication: PRODUCT USED FOR UNKNOWN INDICATION
     Route: 065
  6. CERTICAN [Suspect]
     Indication: PRODUCT USED FOR UNKNOWN INDICATION
     Route: 065
  7. PREDNISONE [Suspect]
     Indication: PRODUCT USED FOR UNKNOWN INDICATION
     Route: 065
  8. AZITHROMYCIN [Suspect]
     Indication: PRODUCT USED FOR UNKNOWN INDICATION
     Route: 065
  9. SEPTRIN FORTE [Suspect]
     Indication: PRODUCT USED FOR UNKNOWN INDICATION
     Route: 065
  10. AMBISOME [Suspect]
     Indication: PRODUCT USED FOR UNKNOWN INDICATION
     Route: 065
  11. OMEPRAZOLE [Suspect]
     Indication: PRODUCT USED FOR UNKNOWN INDICATION
     Route: 065
  12. POLARAMINE [Suspect]
     Indication: PREMEDICATION
     Route: 042
  13. HYDROCORTISONE SODIUM PHOSPHATE [Suspect]
     Indication: PREMEDICATION
     Route: 065
  14. PARACETAMOL [Suspect]
     Indication: PREMEDICATION
     Route: 042
  15. PRIMPERAN [Suspect]
     Indication: PREMEDICATION
     Route: 042

REACTIONS (12)
  - Bone marrow toxicity [Recovered/Resolved]
  - Drug intolerance [Recovered/Resolved]
  - Oxygen saturation decreased [Recovered/Resolved]
  - Vomiting [Recovered/Resolved]
  - Dyspnoea [Recovered/Resolved]
  - Malaise [Recovered/Resolved]
  - Lymphopenia [Recovered/Resolved]
  - Leukopenia [Recovered/Resolved]
  - Mouth ulceration [Recovered/Resolved]
  - Feeling abnormal [Recovered/Resolved]
  - Nausea [Recovered/Resolved]
  - Off label use [Unknown]
